FAERS Safety Report 5754085-0 (Version None)
Quarter: 2008Q2

REPORT INFORMATION
  Report Type: 
  Country: None (occurrence: None)
  Receive Date: 20080530
  Receipt Date: 20080525
  Transmission Date: 20081010
  Serious: Yes (Other)
  Sender: FDA-Public Use
  Company Number: PHEH2008US04825

PATIENT
  Sex: Female

DRUGS (3)
  1. RECLAST [Suspect]
     Route: 042
  2. LOPID [Concomitant]
  3. LIPITOR [Concomitant]

REACTIONS (1)
  - RHABDOMYOLYSIS [None]
